FAERS Safety Report 5891558-4 (Version None)
Quarter: 2008Q3

REPORT INFORMATION
  Report Type: 
  Country: None (occurrence: None)
  Receive Date: 20080918
  Receipt Date: 20080903
  Transmission Date: 20090109
  Serious: Yes (Hospitalization, Other)
  Sender: FDA-Public Use
  Company Number: 2008001236

PATIENT
  Age: 64 Year
  Sex: Female

DRUGS (3)
  1. ERLOTINIB (ERLOTINIB) (TABLET) (ERLOTINIB) [Suspect]
     Indication: LUNG ADENOCARCINOMA
     Dosage: SEE IMAGE
     Route: 048
     Dates: start: 20080312, end: 20080323
  2. ERLOTINIB (ERLOTINIB) (TABLET) (ERLOTINIB) [Suspect]
     Indication: LUNG ADENOCARCINOMA
     Dosage: SEE IMAGE
     Route: 048
     Dates: start: 20080324, end: 20080509
  3. ZOLPIDEM TARTRATE [Concomitant]

REACTIONS (2)
  - ECZEMA [None]
  - MENTAL DISORDER [None]
